FAERS Safety Report 7358050-1 (Version None)
Quarter: 2011Q1

REPORT INFORMATION
  Report Type: 
  Country: None (occurrence: None)
  Receive Date: 20110317
  Receipt Date: 20110302
  Transmission Date: 20110831
  Serious: Yes (Other)
  Sender: FDA-Public Use
  Company Number: PHHY2011JP15868

PATIENT
  Age: 4 Year
  Sex: Female

DRUGS (3)
  1. STEROIDS NOS [Concomitant]
  2. CELLCEPT [Concomitant]
     Indication: HEART TRANSPLANT
  3. CYCLOSPORINE [Suspect]
     Indication: HEART TRANSPLANT

REACTIONS (3)
  - VENTRICULAR EXTRASYSTOLES [None]
  - CARDIAC FIBRILLATION [None]
  - HEART TRANSPLANT REJECTION [None]
